FAERS Safety Report 9143821 (Version 1)
Quarter: 2013Q1

REPORT INFORMATION
  Report Type: Spontaneous
  Country: CZ (occurrence: CZ)
  Receive Date: 20130306
  Receipt Date: 20130306
  Transmission Date: 20140127
  Serious: Yes (Hospitalization, Other)
  Sender: FDA-Public Use
  Company Number: CZ-ROCHE-1197811

PATIENT
  Age: 50 Year
  Sex: Male

DRUGS (1)
  1. COPEGUS [Suspect]
     Indication: HEPATITIS C
     Route: 048
     Dates: start: 2012, end: 20130125

REACTIONS (2)
  - Drug eruption [Recovered/Resolved]
  - Skin discolouration [Unknown]
